FAERS Safety Report 10164085 (Version 1)
Quarter: 2014Q2

REPORT INFORMATION
  Report Type: Spontaneous
  Country: US (occurrence: US)
  Receive Date: 20140510
  Receipt Date: 20140510
  Transmission Date: 20141212
  Serious: No
  Sender: FDA-Public Use
  Company Number: US-BRISTOL-MYERS SQUIBB COMPANY-19915826

PATIENT
  Age: 67 Year
  Sex: Male
  Weight: 98.86 kg

DRUGS (2)
  1. BYETTA PEN DISPOSABLE [Suspect]
     Indication: TYPE 2 DIABETES MELLITUS
     Dosage: 10 MCG PEN ?8 TO 9 YEARS
     Route: 058
  2. NOVOLOG [Concomitant]

REACTIONS (3)
  - Blood glucose decreased [Unknown]
  - Injection site mass [Recovered/Resolved]
  - Medication error [Unknown]
